FAERS Safety Report 13330165 (Version 1)
Quarter: 2017Q1

REPORT INFORMATION
  Report Type: Spontaneous
  Country: US (occurrence: US)
  Receive Date: 20170313
  Receipt Date: 20170313
  Transmission Date: 20170428
  Serious: No
  Sender: FDA-Public Use
  Company Number: US-ASTRAZENECA-2017SE24914

PATIENT
  Sex: Female

DRUGS (2)
  1. GENERIC NEXIUM [Suspect]
     Active Substance: ESOMEPRAZOLE MAGNESIUM
     Indication: GASTROOESOPHAGEAL REFLUX DISEASE
     Route: 048
     Dates: start: 20170303
  2. SYMBICORT [Suspect]
     Active Substance: BUDESONIDE\FORMOTEROL FUMARATE DIHYDRATE
     Dosage: UNKNOWN DOSE  UNKNOWN
     Route: 055

REACTIONS (7)
  - Thirst [Not Recovered/Not Resolved]
  - Injury [Unknown]
  - Gastrooesophageal reflux disease [Recovering/Resolving]
  - Dysphagia [Unknown]
  - Hiatus hernia [Unknown]
  - Intentional product misuse [Unknown]
  - Headache [Not Recovered/Not Resolved]

NARRATIVE: CASE EVENT DATE: 20170303
